FAERS Safety Report 13666679 (Version 1)
Quarter: 2017Q2

REPORT INFORMATION
  Report Type: Spontaneous
  Country: US (occurrence: US)
  Receive Date: 20170619
  Receipt Date: 20170619
  Transmission Date: 20170830
  Serious: No
  Sender: FDA-Public Use
  Company Number: US-ROCHE-1257126

PATIENT
  Sex: Female

DRUGS (1)
  1. XELODA [Suspect]
     Active Substance: CAPECITABINE
     Indication: BREAST CANCER
     Dosage: 14 DAYS THEN 7 DAY OFF
     Route: 048
     Dates: start: 20130620

REACTIONS (4)
  - Skin discolouration [Unknown]
  - Peripheral swelling [Unknown]
  - Lymphadenectomy [Unknown]
  - Breast cancer recurrent [Unknown]
